FAERS Safety Report 6474446-4 (Version None)
Quarter: 2009Q4

REPORT INFORMATION
  Report Type: 
  Country: None (occurrence: None)
  Receive Date: 20091123
  Receipt Date: 20090828
  Transmission Date: 20100525
  Serious: No
  Sender: FDA-Public Use
  Company Number: 8051357

PATIENT
  Age: 44 Year
  Sex: Female

DRUGS (1)
  1. CIMZIA [Suspect]
     Dosage: 400 MG / M SC
     Route: 058
     Dates: start: 20081215

REACTIONS (5)
  - DEPRESSED MOOD [None]
  - DIARRHOEA [None]
  - NAUSEA [None]
  - SOMNOLENCE [None]
  - VOMITING [None]
